FAERS Safety Report 20891428 (Version 1)
Quarter: 2022Q2

REPORT INFORMATION
  Report Type: Report from Study
  Country: US (occurrence: US)
  Receive Date: 20220530
  Receipt Date: 20220530
  Transmission Date: 20220721
  Serious: No
  Sender: FDA-Public Use
  Company Number: US-BIOVITRUM-2021US7042

PATIENT
  Age: 50 Year
  Sex: Male

DRUGS (3)
  1. KINERET [Suspect]
     Active Substance: ANAKINRA
     Indication: Pericardial disease
     Route: 058
     Dates: start: 20201106
  2. KINERET [Suspect]
     Active Substance: ANAKINRA
     Route: 058
     Dates: start: 202010
  3. KINERET [Suspect]
     Active Substance: ANAKINRA
     Route: 058
     Dates: start: 20201106

REACTIONS (11)
  - Somnolence [Unknown]
  - Inflammatory marker increased [Unknown]
  - Effusion [Unknown]
  - COVID-19 [Unknown]
  - Anosmia [Unknown]
  - Ageusia [Unknown]
  - Cough [Unknown]
  - Respiratory tract congestion [Unknown]
  - Headache [Unknown]
  - Product dose omission issue [Unknown]
  - Off label use [Not Recovered/Not Resolved]

NARRATIVE: CASE EVENT DATE: 20201106
